FAERS Safety Report 11399526 (Version 7)
Quarter: 2015Q4

REPORT INFORMATION
  Report Type: Report from Study
  Country: BE (occurrence: BE)
  Receive Date: 20150820
  Receipt Date: 20151130
  Transmission Date: 20160304
  Serious: Yes (Hospitalization)
  Sender: FDA-Public Use
  Company Number: BE-BAYER-2015-398008

PATIENT
  Age: 70 Year
  Sex: Male

DRUGS (12)
  1. NEXAVAR [Suspect]
     Active Substance: SORAFENIB
     Indication: HEPATOCELLULAR CARCINOMA
     Dosage: 800 MG, QD
     Route: 048
     Dates: start: 20150717, end: 20150721
  2. ALDACTONE [Concomitant]
     Active Substance: SPIRONOLACTONE
     Dosage: 25 MG ALTERNATING WITH BURINEX DAY AT DAY
  3. BURINEX [Concomitant]
     Active Substance: BUMETANIDE
     Dosage: ALTERNATING WITH ALDACTONE
  4. BEFACT [CYANOCOBALAMIN,PYRIDOXINE HYDROCHLORIDE,RIBOFLAVIN,THIAMIN [Concomitant]
     Dosage: UNK
  5. LORMETAZEPAM [Concomitant]
     Active Substance: LORMETAZEPAM
     Dosage: 1 MG NOW AND THEN
  6. BIFITERAL [Concomitant]
     Active Substance: LACTULOSE
     Dosage: 6 X 1 MEASURE
  7. PANTOPRAZOLE SODIUM. [Concomitant]
     Active Substance: PANTOPRAZOLE SODIUM
     Dosage: 40 MG, UNK
  8. NEXAVAR [Suspect]
     Active Substance: SORAFENIB
     Indication: HEPATOCELLULAR CARCINOMA
     Dosage: 400 MG, QD
     Route: 048
     Dates: start: 20150806, end: 2015
  9. NEXAVAR [Suspect]
     Active Substance: SORAFENIB
     Indication: HEPATOCELLULAR CARCINOMA
     Dosage: 600 MG, QD
     Route: 048
     Dates: start: 2015, end: 20151110
  10. BEFACT [CYANOCOBALAMIN,PYRIDOXINE,THIAMINE] [Concomitant]
     Dosage: 2X1
  11. INDERAL [Concomitant]
     Active Substance: PROPRANOLOL HYDROCHLORIDE
     Dosage: 40 MG, QD
  12. DEXPANTHENOL. [Concomitant]
     Active Substance: DEXPANTHENOL
     Dosage: 40 MG, UNK

REACTIONS (20)
  - Mobility decreased [Recovered/Resolved]
  - Muscle spasms [None]
  - Weight decreased [None]
  - Diarrhoea [None]
  - Confusional state [None]
  - Insomnia [None]
  - Vertigo [None]
  - Dysphonia [Not Recovered/Not Resolved]
  - Dysphonia [None]
  - Joint swelling [None]
  - Diarrhoea [None]
  - Neurological examination abnormal [Recovered/Resolved]
  - Neurological examination abnormal [Not Recovered/Not Resolved]
  - Rash [None]
  - Fatigue [Not Recovered/Not Resolved]
  - Fatigue [None]
  - Gait disturbance [None]
  - Aphasia [None]
  - Asthenia [Recovered/Resolved]
  - Fatigue [None]

NARRATIVE: CASE EVENT DATE: 20150721
